FAERS Safety Report 10891749 (Version 14)
Quarter: 2016Q1

REPORT INFORMATION
  Report Type: Report from Study
  Country: US (occurrence: US)
  Receive Date: 20150306
  Receipt Date: 20160331
  Transmission Date: 20160525
  Serious: Yes (Other)
  Sender: FDA-Public Use
  Company Number: US-SA-2015SA027489

PATIENT
  Age: 52 Year
  Sex: Male

DRUGS (3)
  1. REBIF [Suspect]
     Active Substance: INTERFERON BETA-1A
     Indication: MULTIPLE SCLEROSIS
     Dosage: ROUTE :SQ
     Dates: start: 20110801, end: 20150316
  2. LEMTRADA [Suspect]
     Active Substance: ALEMTUZUMAB
     Indication: SECONDARY PROGRESSIVE MULTIPLE SCLEROSIS
     Route: 041
     Dates: start: 20150316, end: 20150320
  3. AZATHIOPRINE. [Concomitant]
     Active Substance: AZATHIOPRINE

REACTIONS (20)
  - Coagulopathy [Not Recovered/Not Resolved]
  - Urinary incontinence [Not Recovered/Not Resolved]
  - Fatigue [Not Recovered/Not Resolved]
  - Contusion [Unknown]
  - Ill-defined disorder [Not Recovered/Not Resolved]
  - Headache [Recovering/Resolving]
  - Abasia [Unknown]
  - Hypokinesia [Recovering/Resolving]
  - Rehabilitation therapy [Recovered/Resolved]
  - Rash [Recovering/Resolving]
  - Accident [Unknown]
  - CD4 lymphocytes increased [Unknown]
  - Erythema [Recovering/Resolving]
  - Dysstasia [Unknown]
  - Laboratory test abnormal [Unknown]
  - Feeling hot [Recovering/Resolving]
  - Enuresis [Recovering/Resolving]
  - Decreased appetite [Recovering/Resolving]
  - Memory impairment [Recovering/Resolving]
  - B-lymphocyte count increased [Unknown]

NARRATIVE: CASE EVENT DATE: 2015
